FAERS Safety Report 15405425 (Version 1)
Quarter: 2018Q3

REPORT INFORMATION
  Report Type: Report from Study
  Country: US (occurrence: US)
  Receive Date: 20180920
  Receipt Date: 20180920
  Transmission Date: 20181010
  Serious: Yes (Other)
  Sender: FDA-Public Use
  Company Number: US-ROCHE-2185593

PATIENT
  Age: 54 Year
  Sex: Male
  Weight: 96.3 kg

DRUGS (26)
  1. BEVACIZUMAB. [Suspect]
     Active Substance: BEVACIZUMAB
     Indication: NEOPLASM
     Route: 042
     Dates: start: 201708
  2. HYDROCORTISONE. [Concomitant]
     Active Substance: HYDROCORTISONE
     Dosage: 20 MGMORNING AND 10 MG AFTERNOON
     Route: 065
     Dates: start: 20180830
  3. ATEZOLIZUMAB. [Suspect]
     Active Substance: ATEZOLIZUMAB
     Indication: NEOPLASM
     Route: 042
     Dates: start: 201708
  4. MAGIC MOUTHWASH (LIDOCAINE/DIPHENHYDRAMINE/NYSTATIN) [Concomitant]
     Dosage: AT BEDTIME
     Route: 065
  5. LEVOTHYROXINE. [Concomitant]
     Active Substance: LEVOTHYROXINE
     Route: 048
  6. NEXIUM [Concomitant]
     Active Substance: ESOMEPRAZOLE MAGNESIUM
     Route: 048
  7. CORTEF [Concomitant]
     Active Substance: HYDROCORTISONE
     Route: 065
  8. COZAAR [Concomitant]
     Active Substance: LOSARTAN POTASSIUM
     Route: 048
  9. CREON [Concomitant]
     Active Substance: PANCRELIPASE AMYLASE\PANCRELIPASE LIPASE\PANCRELIPASE PROTEASE
     Dosage: 48000 UNITS
     Route: 048
  10. METFORMIN [Concomitant]
     Active Substance: METFORMIN HYDROCHLORIDE
     Dosage: AT BREAKFAST
     Route: 065
  11. ESGIC [Concomitant]
     Active Substance: ACETAMINOPHEN\BUTALBITAL\CAFFEINE
     Indication: HEADACHE
     Route: 065
  12. CHERATUSSIN AC [Concomitant]
     Active Substance: CODEINE PHOSPHATE\GUAIFENESIN
     Route: 065
  13. HUMALOG [Concomitant]
     Active Substance: INSULIN LISPRO
     Dosage: 5 UNITS
     Route: 065
  14. ASPIRIN. [Concomitant]
     Active Substance: ASPIRIN
     Route: 048
  15. COLACE [Concomitant]
     Active Substance: DOCUSATE SODIUM
     Route: 048
  16. TOUJEO [Concomitant]
     Active Substance: INSULIN GLARGINE
     Route: 065
  17. SENOKOT [Concomitant]
     Active Substance: SENNOSIDES
     Route: 048
  18. VOLTAREN [Concomitant]
     Active Substance: DICLOFENAC SODIUM
     Route: 061
  19. GLYCOLAX [Concomitant]
     Active Substance: POLYETHYLENE GLYCOL 3350
     Route: 048
  20. TOUJEO [Concomitant]
     Active Substance: INSULIN GLARGINE
     Dosage: 30 UNITS AT BEDTIME
     Route: 065
  21. ALEVE [Concomitant]
     Active Substance: NAPROXEN SODIUM
     Route: 048
  22. GOLYTELY [Concomitant]
     Active Substance: POLYETHYLENE GLYCOL 3350\POTASSIUM CHLORIDE\SODIUM BICARBONATE\SODIUM CHLORIDE\SODIUM SULFATE ANHYDROUS
  23. COMPAZINE [Concomitant]
     Active Substance: PROCHLORPERAZINE MALEATE
     Route: 048
  24. ELAVIL [Concomitant]
     Active Substance: AMITRIPTYLINE HYDROCHLORIDE
     Route: 065
  25. DRISDOL [Concomitant]
     Active Substance: ERGOCALCIFEROL
     Dosage: 50000 UNITS
     Route: 048
  26. LEVSIN/SL [Concomitant]
     Route: 060

REACTIONS (1)
  - Adrenal insufficiency [Unknown]

NARRATIVE: CASE EVENT DATE: 20180907
